FAERS Safety Report 25363742 (Version 1)
Quarter: 2025Q2

REPORT INFORMATION
  Report Type: Spontaneous
  Country: CN (occurrence: CN)
  Receive Date: 20250527
  Receipt Date: 20250527
  Transmission Date: 20250717
  Serious: Yes (Other)
  Sender: MYLAN
  Company Number: CN-MYLANLABS-2025M1043251

PATIENT
  Age: 59 Year
  Sex: Male
  Weight: 55 kg

DRUGS (4)
  1. LIPITOR [Suspect]
     Active Substance: ATORVASTATIN CALCIUM
     Indication: Arteriosclerosis
     Dosage: 20 MILLIGRAM, QD (VIA NASAL FEEDING)
     Dates: start: 20250404, end: 20250415
  2. LIPITOR [Suspect]
     Active Substance: ATORVASTATIN CALCIUM
     Dosage: 20 MILLIGRAM, QD (VIA NASAL FEEDING)
     Route: 045
     Dates: start: 20250404, end: 20250415
  3. LIPITOR [Suspect]
     Active Substance: ATORVASTATIN CALCIUM
     Dosage: 20 MILLIGRAM, QD (VIA NASAL FEEDING)
     Route: 045
     Dates: start: 20250404, end: 20250415
  4. LIPITOR [Suspect]
     Active Substance: ATORVASTATIN CALCIUM
     Dosage: 20 MILLIGRAM, QD (VIA NASAL FEEDING)
     Dates: start: 20250404, end: 20250415

REACTIONS (2)
  - Hepatic enzyme increased [Recovering/Resolving]
  - Product use issue [Unknown]

NARRATIVE: CASE EVENT DATE: 20250415
